FAERS Safety Report 7247854-1 (Version None)
Quarter: 2011Q1

REPORT INFORMATION
  Report Type: 
  Country: None (occurrence: None)
  Receive Date: 20110127
  Receipt Date: 20110124
  Transmission Date: 20110831
  Serious: No
  Sender: FDA-Public Use
  Company Number: US-PFIZER INC-2011017048

PATIENT
  Sex: Male
  Weight: 88.435 kg

DRUGS (1)
  1. CAVERJECT [Suspect]
     Indication: ERECTILE DYSFUNCTION
     Dosage: 20 UG, 2X/WEEK
     Route: 017
     Dates: start: 20050101, end: 20100101

REACTIONS (7)
  - DISCOMFORT [None]
  - MUSCULOSKELETAL DISCOMFORT [None]
  - ANORGASMIA [None]
  - ERECTION INCREASED [None]
  - SEXUAL DYSFUNCTION [None]
  - PENIS DISORDER [None]
  - PAIN [None]
